FAERS Safety Report 4754768-5 (Version None)
Quarter: 2005Q3

REPORT INFORMATION
  Report Type: 
  Country: None (occurrence: None)
  Receive Date: 20050826
  Receipt Date: 20050826
  Transmission Date: 20060218
  Serious: Yes (Other)
  Sender: FDA-Public Use
  Company Number: None

PATIENT
  Age: 49 Year
  Sex: Female
  Weight: 49.8957 kg

DRUGS (1)
  1. LAMISIL [Suspect]
     Dosage: 250 MG 1 QD PO
     Route: 048
     Dates: start: 20050622, end: 20050813

REACTIONS (1)
  - AGEUSIA [None]
